FAERS Safety Report 8979351 (Version 1)
Quarter: 2012Q4

REPORT INFORMATION
  Report Type: 
  Country: JP (occurrence: JP)
  Receive Date: 20121221
  Receipt Date: 20121221
  Transmission Date: 20130627
  Serious: Yes (Hospitalization)
  Sender: FDA-Public Use
  Company Number: JP-BAYER-2012-132008

PATIENT
  Age: 77 Year
  Sex: Male

DRUGS (2)
  1. BAYASPIRIN [Suspect]
     Indication: TRANSIENT ISCHAEMIC ATTACK
     Dosage: Daily dose 100 mg
     Route: 048
     Dates: start: 2005
  2. FAMOTIDINE [Concomitant]
     Dosage: Daily dose 40 mg
     Route: 048

REACTIONS (1)
  - Gastric disorder [None]
